FAERS Safety Report 8805013 (Version 2)
Quarter: 2012Q4

REPORT INFORMATION
  Report Type: Spontaneous
  Country: GB (occurrence: None)
  Receive Date: 20120917
  Receipt Date: 20121016
  Transmission Date: 20130627
  Serious: Yes (Other)
  Sender: FDA-Public Use
  Company Number: 2012-4081

PATIENT
  Age: 71 Year
  Sex: Male
  Weight: 70 kg

DRUGS (7)
  1. BOTULINUM TOXIN TYPE A [Suspect]
     Indication: SPASTICITY MUSCLE
     Dosage: Not reported (1 in 1 Cycle(s)), Intramuscular
     Route: 030
     Dates: start: 20120727, end: 20120727
  2. AMITRIPTYLINE (AMITRIPTYLINE) [Concomitant]
     Indication: SPASTICITY MUSCLE
  3. ASPIRIN (ACETYLSALICYLIC ACID) [Concomitant]
  4. BACLOFEN (BACLOFEN) [Concomitant]
  5. BETA BLOCKER (BETA BLOCKING AGENTS) [Concomitant]
  6. QUININE (QUININE) [Concomitant]
  7. AMOXICILLIN (AMOXICILLIN) [Concomitant]

REACTIONS (3)
  - Diarrhoea [None]
  - Weight decreased [None]
  - Skin disorder [None]
